FAERS Safety Report 9280496 (Version 3)
Quarter: 2013Q2

REPORT INFORMATION
  Report Type: Spontaneous
  Country: GB (occurrence: None)
  Receive Date: 20130503
  Receipt Date: 20130605
  Transmission Date: 20140414
  Serious: Yes (Hospitalization, Other)
  Sender: FDA-Public Use
  Company Number: GER/UKI/13/0029337

PATIENT
  Age: 63 Year
  Sex: Female

DRUGS (1)
  1. OMEPRAZOLE [Suspect]
     Indication: PRODUCT USED FOR UNKNOWN INDICATION
     Route: 048

REACTIONS (12)
  - Decreased appetite [None]
  - Bedridden [None]
  - Alopecia [None]
  - Eye haemorrhage [None]
  - Weight decreased [None]
  - Photosensitivity reaction [None]
  - Retinopathy [None]
  - Pain [None]
  - Burning sensation [None]
  - Paraesthesia [None]
  - Syncope [None]
  - Ocular retrobulbar haemorrhage [None]
